FAERS Safety Report 7301892-9 (Version None)
Quarter: 2011Q1

REPORT INFORMATION
  Report Type: 
  Country: None (occurrence: None)
  Receive Date: 20110218
  Receipt Date: 20110210
  Transmission Date: 20110831
  Serious: Yes (Death, Life-Threatening, Other)
  Sender: FDA-Public Use
  Company Number: JP-ROCHE-758072

PATIENT
  Sex: Male
  Weight: 60 kg

DRUGS (12)
  1. WYPAX [Concomitant]
     Route: 050
     Dates: start: 20110121
  2. TENORMIN [Concomitant]
     Route: 048
     Dates: start: 20110121
  3. SEREVENT [Concomitant]
     Dosage: DOSE ROUTE:RESPIRATORY INHALATION AND FORM: REPIRATORY TONIC.
     Route: 055
  4. MUCOSTA [Concomitant]
     Route: 048
  5. BASEN [Concomitant]
     Route: 048
  6. CARBOPLATIN [Suspect]
     Indication: LUNG ADENOCARCINOMA METASTATIC
     Dosage: DOSAGE IS UNCERTAIN.
     Route: 041
     Dates: start: 20110124, end: 20110124
  7. PACLITAXEL [Suspect]
     Indication: LUNG ADENOCARCINOMA METASTATIC
     Dosage: DOSAGE IS UNCERTAIN.
     Route: 041
     Dates: start: 20110124, end: 20110124
  8. BEZATOL [Concomitant]
     Dosage: SUSTAINED RELEASE TABLET.
     Route: 048
  9. URINORM [Concomitant]
     Route: 048
  10. AVASTIN [Suspect]
     Indication: LUNG ADENOCARCINOMA METASTATIC
     Route: 041
     Dates: start: 20110124, end: 20110124
  11. LOXONIN [Concomitant]
     Route: 048
  12. CONIEL [Concomitant]
     Route: 048

REACTIONS (5)
  - CARDIO-RESPIRATORY ARREST [None]
  - CARDIAC TAMPONADE [None]
  - AORTIC RUPTURE [None]
  - HYPERTENSION [None]
  - LOSS OF CONSCIOUSNESS [None]
